FAERS Safety Report 20632386 (Version 3)
Quarter: 2024Q3

REPORT INFORMATION
  Report Type: Spontaneous
  Country: IN (occurrence: IN)
  Receive Date: 20220324
  Receipt Date: 20240912
  Transmission Date: 20241016
  Serious: Yes (Other)
  Sender: PFIZER
  Company Number: IN-PFIZER INC-2020414774

PATIENT
  Age: 71 Year
  Sex: Female
  Weight: 86.45 kg

DRUGS (3)
  1. PALBOCICLIB [Suspect]
     Active Substance: PALBOCICLIB
     Indication: Breast cancer metastatic
     Dosage: 125 MG, CYCLIC (1-0-0 X 3 WEEKS + 7 DAYS OFF)
     Route: 048
     Dates: start: 20200130
  2. LETROZOLE [Concomitant]
     Active Substance: LETROZOLE
     Dosage: UNK
  3. ZA [Concomitant]
     Dosage: UNK

REACTIONS (3)
  - Knee arthroplasty [Unknown]
  - Pain [Unknown]
  - Blood pressure systolic increased [Unknown]

NARRATIVE: CASE EVENT DATE: 20240518
